FAERS Safety Report 8504736-2 (Version None)
Quarter: 2012Q3

REPORT INFORMATION
  Report Type: 
  Country: None (occurrence: None)
  Receive Date: 20120712
  Receipt Date: 20120709
  Transmission Date: 20120928
  Serious: Yes (Death, Hospitalization)
  Sender: FDA-Public Use
  Company Number: DE-AMGEN-DEUSP2012041452

PATIENT
  Age: 71 Year
  Sex: Male
  Weight: 80 kg

DRUGS (2)
  1. XGEVA [Suspect]
     Indication: PROSTATE CANCER
     Dosage: 1 UNK, UNK
     Route: 058
     Dates: start: 20120401, end: 20120601
  2. TAXOTERE [Concomitant]
     Indication: PROSTATE CANCER
     Dosage: UNK UNK, Q3WK
     Route: 042
     Dates: start: 20110401, end: 20120601

REACTIONS (1)
  - ALVEOLITIS ALLERGIC [None]
